FAERS Safety Report 4601379-8 (Version None)
Quarter: 2005Q1

REPORT INFORMATION
  Report Type: 
  Country: None (occurrence: None)
  Receive Date: 20050202
  Receipt Date: 20040504
  Transmission Date: 20050727
  Serious: Yes (Hospitalization)
  Sender: FDA-Public Use
  Company Number: 8006265

PATIENT
  Age: 11 Year
  Sex: Female

DRUGS (3)
  1. KEPPRA [Suspect]
     Indication: CONVULSION
  2. ZONISAMIDE [Concomitant]
  3. TRILEPTAL [Concomitant]

REACTIONS (1)
  - PSYCHOTIC DISORDER [None]
